FAERS Safety Report 5729088-2 (Version None)
Quarter: 2008Q2

REPORT INFORMATION
  Report Type: 
  Country: None (occurrence: None)
  Receive Date: 20080505
  Receipt Date: 20080505
  Transmission Date: 20081010
  Serious: No
  Sender: FDA-Public Use
  Company Number: None

PATIENT

DRUGS (2)
  1. DDAVP (GENERIC) 0.4-0.6 [Suspect]
     Indication: PRURITUS
     Dosage: 0.4-0.6MG QHS
     Dates: start: 20070601, end: 20071012
  2. DILTIAZEM [Concomitant]

REACTIONS (2)
  - DRUG INEFFECTIVE [None]
  - THERAPEUTIC RESPONSE UNEXPECTED WITH DRUG SUBSTITUTION [None]
